FAERS Safety Report 9235514 (Version 1)
Quarter: 2013Q1

REPORT INFORMATION
  Report Type: Spontaneous
  Country: US (occurrence: None)
  Receive Date: 20121031
  Receipt Date: 20121031
  Transmission Date: 20140127
  Serious: No
  Sender: FDA-Public Use
  Company Number: PHEH2012US011608

PATIENT
  Age: 61 Year
  Sex: Female
  Weight: 99.79 kg

DRUGS (4)
  1. GILENYA (FTY) CAPSULE, 0.5MG [Suspect]
     Indication: MULTIPLE SCLEROSIS
     Route: 048
     Dates: start: 2011
  2. AMBIEN (ZOLPIDEM TARTRATE) TABLET [Concomitant]
  3. NAMENDA (NEMANTINE HYDROCHLORIDE) TABLET [Concomitant]
  4. ZOCOR (SIMVASTATIN) TABLET [Concomitant]

REACTIONS (3)
  - Fall [None]
  - Influenza like illness [None]
  - Cough [None]
